FAERS Safety Report 5296495-4 (Version None)
Quarter: 2007Q2

REPORT INFORMATION
  Report Type: 
  Country: None (occurrence: None)
  Receive Date: 20070413
  Receipt Date: 20070403
  Transmission Date: 20071010
  Serious: Yes (Death, Other)
  Sender: FDA-Public Use
  Company Number: US-PFIZER INC-2005115229

PATIENT
  Sex: Male

DRUGS (2)
  1. NEURONTIN [Suspect]
     Indication: PAIN IN EXTREMITY
     Route: 048
     Dates: start: 19960201, end: 19960601
  2. NEURONTIN [Suspect]
     Indication: NEURALGIA

REACTIONS (13)
  - ABNORMAL BEHAVIOUR [None]
  - AGITATION [None]
  - ANXIETY [None]
  - COMPLETED SUICIDE [None]
  - DEPRESSION [None]
  - DRUG INEFFECTIVE [None]
  - DRUG WITHDRAWAL SYNDROME [None]
  - HOSTILITY [None]
  - IRRITABILITY [None]
  - LETHARGY [None]
  - NEURALGIA [None]
  - PARANOIA [None]
  - SOMNOLENCE [None]
